FAERS Safety Report 15956471 (Version 2)
Quarter: 2019Q1

REPORT INFORMATION
  Report Type: Spontaneous
  Country: US (occurrence: US)
  Receive Date: 20190213
  Receipt Date: 20190215
  Transmission Date: 20190417
  Serious: Yes (Other)
  Sender: FDA-Public Use
  Company Number: US-JNJFOC-20190210454

PATIENT
  Age: 51 Year
  Sex: Female
  Weight: 79.83 kg

DRUGS (3)
  1. XARELTO [Suspect]
     Active Substance: RIVAROXABAN
     Indication: THROMBOSIS
     Route: 048
     Dates: start: 2016
  2. XARELTO [Suspect]
     Active Substance: RIVAROXABAN
     Indication: THROMBOSIS
     Route: 048
  3. XARELTO [Suspect]
     Active Substance: RIVAROXABAN
     Indication: THROMBOSIS
     Route: 048
     Dates: start: 201901

REACTIONS (11)
  - Gastric neoplasm [Unknown]
  - Blood pressure inadequately controlled [Recovering/Resolving]
  - Head injury [Unknown]
  - Myocardial infarction [Unknown]
  - Weight increased [Unknown]
  - Flushing [Unknown]
  - Loss of consciousness [Unknown]
  - Adverse event [Unknown]
  - Gastric ulcer [Unknown]
  - Swelling face [Unknown]
  - Treatment noncompliance [Unknown]

NARRATIVE: CASE EVENT DATE: 201807
